FAERS Safety Report 11372090 (Version 3)
Quarter: 2015Q3

REPORT INFORMATION
  Report Type: Spontaneous
  Country: US (occurrence: US)
  Receive Date: 20150812
  Receipt Date: 20150820
  Transmission Date: 20151125
  Serious: Yes (Other)
  Sender: FDA-Public Use
  Company Number: US-TEVA-584699USA

PATIENT
  Sex: Female

DRUGS (1)
  1. CELECOXIB. [Suspect]
     Active Substance: CELECOXIB
     Indication: PAIN
     Dosage: 1-2 TABS QD
     Route: 065

REACTIONS (10)
  - Gait disturbance [Unknown]
  - Haemorrhage [Unknown]
  - Arthralgia [Unknown]
  - Pain [Unknown]
  - Hypokinesia [Unknown]
  - Muscle spasms [Unknown]
  - Product substitution issue [Unknown]
  - Abdominal discomfort [Unknown]
  - Drug ineffective [Unknown]
  - Oedema peripheral [Unknown]
